FAERS Safety Report 22610676 (Version 1)
Quarter: 2023Q2

REPORT INFORMATION
  Report Type: Spontaneous
  Country: US (occurrence: None)
  Receive Date: 20230615
  Receipt Date: 20230615
  Transmission Date: 20230721
  Serious: No
  Sender: FDA-Public Use
  Company Number: None

PATIENT
  Sex: Male

DRUGS (1)
  1. TEMOZOLOMIDE [Suspect]
     Active Substance: TEMOZOLOMIDE
     Indication: Soft tissue sarcoma
     Dosage: OTHER QUANTITY : 2C;?FREQUENCY : DAILY;?OTHER ROUTE : PO 7D ON 7D OFF;?
     Route: 050

REACTIONS (2)
  - Blood disorder [None]
  - Therapy interrupted [None]
